FAERS Safety Report 23243359 (Version 1)
Quarter: 2023Q4

REPORT INFORMATION
  Report Type: Spontaneous
  Country: US (occurrence: US)
  Receive Date: 20231130
  Receipt Date: 20231130
  Transmission Date: 20240110
  Serious: Yes (Hospitalization, Other)
  Sender: FDA-Public Use
  Company Number: US-STRIDES ARCOLAB LIMITED-2023SP017039

PATIENT
  Age: 53 Year
  Sex: Male

DRUGS (21)
  1. METHOTREXATE [Suspect]
     Active Substance: METHOTREXATE
     Indication: B-cell lymphoma
     Dosage: UNK, CYCLICAL (6 CYCLES HIGH DOSE)
     Route: 065
  2. METHOTREXATE [Suspect]
     Active Substance: METHOTREXATE
     Dosage: UNK, CYCLICAL (8 CYCLES HIGH DOSE)
     Route: 065
  3. METHOTREXATE [Suspect]
     Active Substance: METHOTREXATE
     Dosage: UNK, HIGH-DOSE
     Route: 065
  4. METHOTREXATE [Suspect]
     Active Substance: METHOTREXATE
     Dosage: UNK, HIGH-DOSE
     Route: 065
  5. PREDNISOLONE [Suspect]
     Active Substance: PREDNISOLONE
     Indication: B-cell lymphoma
     Dosage: UNK, CYCLICAL (6 CYCLES, R-CHOP REGIMEN)
     Route: 065
  6. ETOPOSIDE [Suspect]
     Active Substance: ETOPOSIDE
     Indication: B-cell lymphoma
     Dosage: UNK, CYCLICAL (8 CYCLES, SIX DOSES)
     Route: 065
  7. RITUXIMAB [Suspect]
     Active Substance: RITUXIMAB
     Indication: B-cell lymphoma
     Dosage: UNK, CYCLICAL (6 CYCLES, R-CHOP REGIMEN)
     Route: 065
  8. RITUXIMAB [Suspect]
     Active Substance: RITUXIMAB
     Dosage: UNK, CYCLICAL (8 CYCLES, 6 DOSES)
     Route: 065
  9. RITUXIMAB [Suspect]
     Active Substance: RITUXIMAB
     Dosage: UNK
     Route: 065
  10. RITUXIMAB [Suspect]
     Active Substance: RITUXIMAB
     Dosage: UNK
     Route: 065
  11. ADRIAMYCIN [Suspect]
     Active Substance: DOXORUBICIN HYDROCHLORIDE
     Indication: B-cell lymphoma
     Dosage: UNK, CYCLICAL (6 CYCLES, R-CHOP REGIMEN)
     Route: 065
  12. VINCRISTINE [Suspect]
     Active Substance: VINCRISTINE
     Indication: B-cell lymphoma
     Dosage: UNK, CYCLICAL (6 CYCLES, R-CHOP REGIMEN)
     Route: 065
  13. CYTARABINE [Suspect]
     Active Substance: CYTARABINE
     Indication: B-cell lymphoma
     Dosage: UNK, CYCLICAL (SIX CYCLES)
     Route: 037
  14. TEMOZOLOMIDE [Suspect]
     Active Substance: TEMOZOLOMIDE
     Indication: B-cell lymphoma
     Dosage: UNK, CYCLICAL (8 CYCLES, SIX DOSES)
     Route: 065
  15. LENALIDOMIDE [Suspect]
     Active Substance: LENALIDOMIDE
     Indication: B-cell lymphoma
     Dosage: UNK, (MAINTENANCE)
     Route: 065
  16. LENALIDOMIDE [Suspect]
     Active Substance: LENALIDOMIDE
     Dosage: 10 MILLIGRAM/DAY
     Route: 065
  17. POMALIDOMIDE [Suspect]
     Active Substance: POMALIDOMIDE
     Indication: B-cell lymphoma
     Dosage: UNK, (MAINTENANCE)
     Route: 065
  18. ISAVUCONAZONIUM [Suspect]
     Active Substance: ISAVUCONAZONIUM
     Indication: B-cell lymphoma
     Dosage: UNK
     Route: 065
  19. IBRUTINIB [Suspect]
     Active Substance: IBRUTINIB
     Indication: B-cell lymphoma
     Dosage: UNK, (MONOTHERAPY)
     Route: 065
  20. IBRUTINIB [Suspect]
     Active Substance: IBRUTINIB
     Dosage: UNK, (ALONG WITH LENALIDOMIDE)
     Route: 065
  21. CYCLOPHOSPHAMIDE [Suspect]
     Active Substance: CYCLOPHOSPHAMIDE
     Indication: B-cell lymphoma
     Dosage: UNK, CYCLICAL (6 CYCLES, R-CHOP REGIMEN)
     Route: 065

REACTIONS (6)
  - Pneumonia respiratory syncytial viral [Unknown]
  - Cholecystitis infective [Unknown]
  - Necrosis [Unknown]
  - Aspergillus infection [Unknown]
  - Malignant neoplasm progression [Unknown]
  - Therapy partial responder [Unknown]
